FAERS Safety Report 9819136 (Version 1)
Quarter: 2014Q1

REPORT INFORMATION
  Report Type: Spontaneous
  Country: US (occurrence: US)
  Receive Date: 20140115
  Receipt Date: 20140115
  Transmission Date: 20141002
  Serious: No
  Sender: FDA-Public Use
  Company Number: US-ENDO PHARMACEUTICALS INC.-PERC20130137

PATIENT
  Sex: Female

DRUGS (3)
  1. PERCOCET [Suspect]
     Indication: PAIN
     Dosage: UNK
     Route: 048
  2. NUCYNTA [Suspect]
     Indication: PAIN
     Dosage: UNK
     Route: 048
  3. ASPIRIN [Suspect]
     Indication: PAIN
     Dosage: UNK
     Route: 048

REACTIONS (1)
  - Depression [Not Recovered/Not Resolved]
